FAERS Safety Report 5034087-2 (Version None)
Quarter: 2006Q2

REPORT INFORMATION
  Report Type: 
  Country: None (occurrence: None)
  Receive Date: 20060621
  Receipt Date: 20060609
  Transmission Date: 20061013
  Serious: Yes (Hospitalization, Other)
  Sender: FDA-Public Use
  Company Number: HQWYE447422MAY06

PATIENT
  Age: 47 Year
  Sex: Male
  Weight: 84.44 kg

DRUGS (8)
  1. RAPAMUNE [Suspect]
     Indication: PROPHYLAXIS AGAINST TRANSPLANT REJECTION
     Dosage: 4 MG 1X PER 1 DAY, ORAL
     Route: 048
     Dates: start: 20060309, end: 20060518
  2. CELLCEPT [Concomitant]
  3. PREDNISONE [Concomitant]
  4. SEPTRA [Concomitant]
  5. VALCYTE [Concomitant]
  6. LIPITOR [Concomitant]
  7. ATACAND [Concomitant]
  8. ACETAMINOPHEN [Concomitant]

REACTIONS (4)
  - BLOOD PRESSURE INCREASED [None]
  - BODY TEMPERATURE DECREASED [None]
  - DRUG INEFFECTIVE [None]
  - KIDNEY TRANSPLANT REJECTION [None]
